FAERS Safety Report 5671103-9 (Version None)
Quarter: 2008Q1

REPORT INFORMATION
  Report Type: 
  Country: None (occurrence: None)
  Receive Date: 20080318
  Receipt Date: 20080304
  Transmission Date: 20080703
  Serious: Yes (Death, Hospitalization, Other)
  Sender: FDA-Public Use
  Company Number: US-ELI_LILLY_AND_COMPANY-US200802003696

PATIENT
  Age: 90 Year
  Sex: Female
  Weight: 43.537 kg

DRUGS (7)
  1. FORTEO [Suspect]
     Indication: OSTEOPOROSIS
     Dosage: UNK, UNK
     Dates: start: 20070416, end: 20071114
  2. NORVASC [Concomitant]
     Dosage: 5 MG, UNK
     Dates: start: 20070130
  3. ZOCOR [Concomitant]
     Dosage: 20 MG, UNK
  4. PLAVIX [Concomitant]
     Dosage: 75 MG, UNK
  5. DIOVAN [Concomitant]
     Dosage: 80 MG, UNK
  6. NEXIUM [Concomitant]
     Dosage: 40 MG, UNK
  7. LANOXIN [Concomitant]
     Dosage: 0.125 MG, UNK

REACTIONS (3)
  - PNEUMONIA [None]
  - RENAL FAILURE [None]
  - SEPSIS [None]
